FAERS Safety Report 17091157 (Version 1)
Quarter: 2019Q4

REPORT INFORMATION
  Report Type: Spontaneous
  Country: US (occurrence: US)
  Receive Date: 20191129
  Receipt Date: 20191129
  Transmission Date: 20200122
  Serious: No
  Sender: FDA-Public Use
  Company Number: US-TEVA-2019-US-1144346

PATIENT
  Sex: Male

DRUGS (1)
  1. OXYCODONE W/ACETYLSALICYLIC ACID [Suspect]
     Active Substance: ASPIRIN\OXYCODONE HYDROCHLORIDE
     Indication: PAIN
     Dosage: 0.8355/325 MG
     Route: 065
     Dates: start: 2004

REACTIONS (2)
  - Wrong technique in product usage process [Unknown]
  - Drug intolerance [Unknown]
